FAERS Safety Report 4510977-1 (Version None)
Quarter: 2004Q4

REPORT INFORMATION
  Report Type: 
  Country: None (occurrence: None)
  Receive Date: 20040928
  Receipt Date: 20040604
  Transmission Date: 20050328
  Serious: No
  Sender: FDA-Public Use
  Company Number: 04P-163-0262807-00

PATIENT
  Age: 58 Year
  Sex: Female
  Weight: 52.6173 kg

DRUGS (6)
  1. HUMIRA [Suspect]
     Indication: RHEUMATOID ARTHRITIS
     Dosage: 40 MG, 1 IN 2 WK, SUBCUTANEOUS
     Route: 058
     Dates: start: 20040401
  2. METHOTREXATE [Concomitant]
  3. ROFECOXIB [Concomitant]
  4. MULTIVITAMIN [Concomitant]
  5. ALENDRONATE SODIUM [Concomitant]
  6. CALCIUM [Concomitant]

REACTIONS (2)
  - INJECTION SITE ERYTHEMA [None]
  - INJECTION SITE PRURITUS [None]
